FAERS Safety Report 15600954 (Version 1)
Quarter: 2018Q4

REPORT INFORMATION
  Report Type: Spontaneous
  Country: US (occurrence: US)
  Receive Date: 20181108
  Receipt Date: 20181108
  Transmission Date: 20190205
  Serious: Yes (Life-Threatening, Disabling)
  Sender: FDA-Public Use
  Company Number: None

PATIENT
  Age: 70 Year
  Sex: Female
  Weight: 112.5 kg

DRUGS (1)
  1. CREST PRO-HEALTH RINSE [Suspect]
     Active Substance: CETYLPYRIDINIUM CHLORIDE
     Indication: GINGIVITIS
     Dosage: ?          OTHER STRENGTH:1 SMALL CUP FULL;QUANTITY:4 OUNCE(S);?
     Route: 048
     Dates: start: 20170221, end: 20170221

REACTIONS (7)
  - Pyrexia [None]
  - Oral discomfort [None]
  - Throat tightness [None]
  - Oral mucosal blistering [None]
  - Oral pain [None]
  - Corrosive oropharyngeal injury [None]
  - Dysgeusia [None]

NARRATIVE: CASE EVENT DATE: 20170221
